FAERS Safety Report 23722425 (Version 5)
Quarter: 2024Q2

REPORT INFORMATION
  Report Type: Spontaneous
  Country: US (occurrence: US)
  Receive Date: 20240409
  Receipt Date: 20240531
  Transmission Date: 20240716
  Serious: No
  Sender: FDA-Public Use
  Company Number: US-PFIZER INC-202400077876

PATIENT
  Age: 7 Year
  Sex: Male

DRUGS (6)
  1. GENOTROPIN [Suspect]
     Active Substance: SOMATROPIN
     Indication: Growth hormone deficiency
     Dosage: 0.2 MG, DAILY
  2. GENOTROPIN [Suspect]
     Active Substance: SOMATROPIN
     Indication: Hypopituitarism
     Dosage: (0.1 UNKNOWN UNITS)
     Dates: start: 20240307
  3. GENOTROPIN [Suspect]
     Active Substance: SOMATROPIN
     Dosage: (INCREASED TO 0.2 UNKNOWN UNITS)
     Dates: start: 20240314
  4. GENOTROPIN [Suspect]
     Active Substance: SOMATROPIN
     Dosage: 0.2 MG, DAILY (DOSE IN INCREMENTS OF 0.1MG, 0.2MG/DAY 7 DAYS/WEEK)
  5. FLOVENT HFA [Concomitant]
     Active Substance: FLUTICASONE PROPIONATE
     Indication: Obstructive airways disorder
     Dosage: 110 MG
     Dates: start: 2017
  6. FLUTICASONE [Concomitant]
     Active Substance: FLUTICASONE
     Indication: Obstructive airways disorder
     Dosage: 50 UG
     Route: 045

REACTIONS (5)
  - Drug dose omission by device [Unknown]
  - Wrong technique in device usage process [Unknown]
  - Device leakage [Unknown]
  - Device mechanical issue [Unknown]
  - Device breakage [Unknown]
